FAERS Safety Report 20406961 (Version 1)
Quarter: 2022Q1

REPORT INFORMATION
  Report Type: Spontaneous
  Country: FR (occurrence: FR)
  Receive Date: 20220131
  Receipt Date: 20220131
  Transmission Date: 20220423
  Serious: Yes (Life-Threatening, Other)
  Sender: FDA-Public Use
  Company Number: None

PATIENT
  Age: 73 Year
  Sex: Male

DRUGS (7)
  1. CEFTRIAXONE [Suspect]
     Active Substance: CEFTRIAXONE
     Indication: Infection
     Dosage: 1 G, QD (24 HOUR)
     Route: 042
     Dates: start: 20210308, end: 20210315
  2. ATOVAQUONE [Suspect]
     Active Substance: ATOVAQUONE
     Indication: Pneumonia
     Dosage: 1400 MG, QD
     Route: 048
     Dates: start: 20210309, end: 20210315
  3. COUMADIN [Suspect]
     Active Substance: WARFARIN SODIUM
     Indication: Thrombosis prophylaxis
     Dosage: 2 MG, QD
     Route: 048
     Dates: start: 20210311, end: 20210315
  4. POLARAMINE [Suspect]
     Active Substance: DEXCHLORPHENIRAMINE MALEATE
     Indication: Hypersensitivity
     Dosage: 2 MG (1 TOTAL)
     Route: 048
     Dates: start: 20210315, end: 20210315
  5. METHYLPREDNISOLONE [Suspect]
     Active Substance: METHYLPREDNISOLONE
     Indication: Renal failure
     Dosage: 40 MG (1 TOTAL)
     Route: 042
     Dates: start: 20210315, end: 20210315
  6. OXYCODONE [Suspect]
     Active Substance: OXYCODONE
     Indication: Pain
     Dosage: 5 MG (IF NECESSARY/4 HOURS)
     Route: 048
     Dates: start: 20210311, end: 20210315
  7. MABTHERA [Suspect]
     Active Substance: RITUXIMAB
     Indication: Cryoglobulinaemia
     Dosage: 700 MG (1 TOTAL)
     Route: 042
     Dates: start: 20210315, end: 20210315

REACTIONS (1)
  - Acute respiratory distress syndrome [Recovered/Resolved]

NARRATIVE: CASE EVENT DATE: 20210316
